FAERS Safety Report 7415729-0 (Version None)
Quarter: 2011Q2

REPORT INFORMATION
  Report Type: 
  Country: None (occurrence: None)
  Receive Date: 20110414
  Receipt Date: 20101116
  Transmission Date: 20111010
  Serious: No
  Sender: FDA-Public Use
  Company Number: US-BRISTOL-MYERS SQUIBB COMPANY-15392335

PATIENT

DRUGS (1)
  1. HYDREA [Suspect]

REACTIONS (2)
  - NO ADVERSE EVENT [None]
  - ACCIDENTAL EXPOSURE [None]
